FAERS Safety Report 21661137 (Version 1)
Quarter: 2022Q4

REPORT INFORMATION
  Report Type: Spontaneous
  Country: CN (occurrence: CN)
  Receive Date: 20221130
  Receipt Date: 20221130
  Transmission Date: 20230113
  Serious: Yes (Other)
  Sender: FDA-Public Use
  Company Number: None

PATIENT
  Age: 72 Year
  Sex: Male
  Weight: 44 kg

DRUGS (10)
  1. CYCLOPHOSPHAMIDE [Suspect]
     Active Substance: CYCLOPHOSPHAMIDE
     Indication: Diffuse large B-cell lymphoma
     Dosage: 0.735, QD DILUTED WITH 0.9% SODIUM CHLORIDE INJECTION 40 ML, INTRAPUMP
     Route: 050
     Dates: start: 20221105, end: 20221105
  2. SODIUM CHLORIDE [Suspect]
     Active Substance: SODIUM CHLORIDE
     Indication: Medication dilution
     Dosage: 40 ML, QD, USED TO DILUTE 0.735 CYCLOPHOSPHAMIDE, MICROPUMP INTRAVENOUS BOLUS
     Route: 050
     Dates: start: 20221105, end: 20221105
  3. SODIUM CHLORIDE [Suspect]
     Active Substance: SODIUM CHLORIDE
     Dosage: 200 ML, QD, USED TO DILUTE 100MG RITUXIMAB
     Route: 065
     Dates: start: 20221104, end: 20221104
  4. SODIUM CHLORIDE [Suspect]
     Active Substance: SODIUM CHLORIDE
     Dosage: 20ML, QD USED TO DILUTE 4 MG VINDESINE, MICROPUMP INTRAVENOUS BOLUS ONCE
     Route: 065
     Dates: start: 20221105, end: 20221105
  5. SODIUM CHLORIDE [Suspect]
     Active Substance: SODIUM CHLORIDE
     Dosage: 100 ML, QD USED TO DILUTE 13MG DEXAMETHASONE SODIUM PHOSPHATE
     Route: 065
     Dates: start: 20221105, end: 20221109
  6. DEXTROSE [Suspect]
     Active Substance: DEXTROSE
     Indication: Medication dilution
     Dosage: 250 ML, QD, USED TO DILUTE 68.6 MG EPIRUBICIN HYDROCHLORIDE
     Route: 065
     Dates: start: 20221105, end: 20221105
  7. RITUXIMAB [Suspect]
     Active Substance: RITUXIMAB
     Indication: Diffuse large B-cell lymphoma
     Dosage: 100MG, QD, DILUTED WITH 0.9% SODIUM CHLORIDE INJECTION 200 ML
     Route: 041
     Dates: start: 20221104, end: 20221104
  8. EPIRUBICIN HYDROCHLORIDE [Suspect]
     Active Substance: EPIRUBICIN HYDROCHLORIDE
     Indication: Diffuse large B-cell lymphoma
     Dosage: 68.6 MG, QD, DILUTED WITH GLUCOSE INJECTION 250 ML, QD
     Route: 041
     Dates: start: 20221105, end: 20221105
  9. VINDESINE SULFATE [Suspect]
     Active Substance: VINDESINE SULFATE
     Indication: Diffuse large B-cell lymphoma
     Dosage: 4MG, QD, DILUTED WITH SODIUM CHLORIDE 20 ML, INTRA PUMP INJECTION
     Route: 050
     Dates: start: 20221105, end: 20221105
  10. DEXAMETHASONE SODIUM PHOSPHATE [Concomitant]
     Active Substance: DEXAMETHASONE SODIUM PHOSPHATE
     Indication: Diffuse large B-cell lymphoma
     Dosage: 13 MG, QD, DILUED WITH SODIUM CHLORIDE 100 ML
     Route: 041
     Dates: start: 20221105, end: 20221109

REACTIONS (1)
  - Myelosuppression [Recovering/Resolving]

NARRATIVE: CASE EVENT DATE: 20221116
